FAERS Safety Report 7595445-5 (Version None)
Quarter: 2011Q3

REPORT INFORMATION
  Report Type: 
  Country: None (occurrence: None)
  Receive Date: 20110707
  Receipt Date: 20110629
  Transmission Date: 20111222
  Serious: Yes (Death, Hospitalization, Other)
  Sender: FDA-Public Use
  Company Number: GB-TEVA-285449ISR

PATIENT
  Sex: Female
  Weight: 18 kg

DRUGS (7)
  1. THIOTEPA [Concomitant]
  2. METHOTREXATE [Suspect]
     Indication: GRAFT VERSUS HOST DISEASE
     Dosage: 7.4 MILLIGRAM;
     Route: 040
     Dates: start: 20101121, end: 20101121
  3. METHOTREXATE [Suspect]
     Dosage: 7.4 MILLIGRAM;
     Route: 040
     Dates: start: 20101124, end: 20101124
  4. CYCLOSPORINE [Concomitant]
     Indication: GRAFT VERSUS HOST DISEASE
  5. ALEMTUZUMAB [Concomitant]
  6. CYCLOPHOSPHAMIDE [Suspect]
     Indication: BONE MARROW TRANSPLANT
     Dosage: 900 MILLIGRAM;
     Route: 042
     Dates: start: 20101112, end: 20101115
  7. BUSULFAN [Suspect]
     Indication: BONE MARROW TRANSPLANT
     Dosage: 18 MILLIGRAM;
     Route: 048
     Dates: start: 20101108, end: 20101111

REACTIONS (17)
  - URINARY TRACT INFECTION [None]
  - LUNG DISORDER [None]
  - PNEUMONIA CYTOMEGALOVIRAL [None]
  - CYTOMEGALOVIRUS INFECTION [None]
  - GASTROINTESTINAL TOXICITY [None]
  - RESPIRATORY DISTRESS [None]
  - WEIGHT DECREASED [None]
  - COUGH [None]
  - MUCOSAL INFLAMMATION [None]
  - METAPNEUMOVIRUS INFECTION [None]
  - CARDIO-RESPIRATORY ARREST [None]
  - FUNGAL INFECTION [None]
  - LEUKOENCEPHALOPATHY [None]
  - FEBRILE NEUTROPENIA [None]
  - IDIOPATHIC PNEUMONIA SYNDROME [None]
  - PERIORBITAL OEDEMA [None]
  - POSTERIOR REVERSIBLE ENCEPHALOPATHY SYNDROME [None]
